FAERS Safety Report 5607506-8 (Version None)
Quarter: 2008Q1

REPORT INFORMATION
  Report Type: 
  Country: None (occurrence: None)
  Receive Date: 20080125
  Receipt Date: 20080110
  Transmission Date: 20080703
  Serious: Yes (Hospitalization)
  Sender: FDA-Public Use
  Company Number: 2007001664

PATIENT
  Age: 71 Year
  Sex: Male
  Weight: 86 kg

DRUGS (8)
  1. ERLOTINIB (TABLET) [Suspect]
     Indication: COLORECTAL CANCER
     Dosage: 75 MG (QD), ORAL
     Route: 048
     Dates: start: 20070130
  2. BEVACIZUMAB (INJECTION FOR INFUSION) [Suspect]
     Dosage: 451 MG (Q2W), INTRAVENOUS
     Route: 042
     Dates: start: 20070130
  3. EVEROLIMUS (EVEROLIMUS) [Suspect]
     Indication: COLORECTAL CANCER
     Dosage: 5 MG (QD), ORAL
     Route: 048
  4. DITROPAN [Concomitant]
  5. PRILOSEC (OMEPAZOLE) [Concomitant]
  6. NORVASC [Concomitant]
  7. DEXAMETAHSONE (DEXAMETHASONE) [Concomitant]
  8. DIOVAN [Concomitant]

REACTIONS (4)
  - ABDOMINAL PAIN [None]
  - CHEST PAIN [None]
  - ENTEROVESICAL FISTULA [None]
  - UROSEPSIS [None]
